FAERS Safety Report 10256287 (Version 1)
Quarter: 2014Q2

REPORT INFORMATION
  Report Type: Spontaneous
  Country: FR (occurrence: FR)
  Receive Date: 20140624
  Receipt Date: 20140624
  Transmission Date: 20141212
  Serious: Yes (Hospitalization, Other)
  Sender: FDA-Public Use
  Company Number: FR-ACTAVIS-2014-14086

PATIENT
  Age: 57 Year
  Sex: Female
  Weight: 45 kg

DRUGS (5)
  1. ZOLEDRONIC ACID (UNKNOWN) [Suspect]
     Indication: METASTATIC RENAL CELL CARCINOMA
     Dosage: UNKNOWN
     Route: 065
  2. EVEROLIMUS [Suspect]
     Indication: METASTATIC RENAL CELL CARCINOMA
     Dosage: 10 MG, DAILY
     Route: 065
     Dates: start: 201206
  3. EVEROLIMUS [Suspect]
     Dosage: 5 MG, DAILY
     Route: 065
  4. INTERFERON [Concomitant]
     Indication: METASTATIC RENAL CELL CARCINOMA
     Dosage: UNKNOWN
     Route: 065
  5. SUNITINIB [Concomitant]
     Indication: METASTATIC RENAL CELL CARCINOMA
     Dosage: UNKNOWN
     Route: 065
     Dates: end: 2011

REACTIONS (4)
  - Renal failure acute [Recovered/Resolved]
  - Metastatic renal cell carcinoma [None]
  - Malignant neoplasm progression [None]
  - Weight decreased [None]
